FAERS Safety Report 6256314-6 (Version None)
Quarter: 2009Q3

REPORT INFORMATION
  Report Type: 
  Country: None (occurrence: None)
  Receive Date: 20090706
  Receipt Date: 20090622
  Transmission Date: 20100115
  Serious: Yes (Other)
  Sender: FDA-Public Use
  Company Number: JP-NAPPMUNDI-MAG-2009-0000799

PATIENT
  Sex: Female

DRUGS (12)
  1. OXYCODONE HCL PR TABLET 10 MG [Suspect]
     Indication: CANCER PAIN
     Dosage: 5 MG, DAILY
     Route: 048
     Dates: start: 20090526, end: 20090526
  2. OXYCODONE HYDROCHLORIDE [Concomitant]
     Dosage: UNK
     Route: 065
  3. NOVAMIN                            /00013301/ [Concomitant]
     Indication: NAUSEA
     Dosage: UNK
     Dates: start: 20090529, end: 20090604
  4. NOVAMIN                            /00013301/ [Concomitant]
     Dosage: 5 MG X3, DAILY
     Route: 065
     Dates: start: 20090525, end: 20090526
  5. MUCOSTA [Concomitant]
     Indication: GASTRIC ULCER
     Dosage: 300 MG, DAILY
     Route: 048
     Dates: start: 20080707
  6. FERROMIA                           /00023516/ [Concomitant]
     Indication: ANAEMIA
     Dosage: 100 MG, DAILY
     Route: 048
     Dates: start: 20090302, end: 20090603
  7. LOBU [Concomitant]
     Indication: CANCER PAIN
     Dosage: 180 MG, DAILY
     Route: 048
     Dates: start: 20080707
  8. TAKEPRON [Concomitant]
     Indication: GASTRIC ULCER
     Dosage: 30 MG, DAILY
     Route: 048
     Dates: start: 20090525, end: 20090603
  9. MAGMITT [Concomitant]
     Indication: DRUG USE FOR UNKNOWN INDICATION
     Dosage: 750 MG, DAILY
     Route: 065
  10. BROCIN                             /01650902/ [Concomitant]
     Indication: COUGH
     Dosage: 12 ML, DAILY
     Route: 048
     Dates: start: 20090525, end: 20090526
  11. APRICOT KERNEL WATER [Concomitant]
     Indication: COUGH
     Dosage: 3 ML, DAILY
     Route: 048
     Dates: start: 20090525, end: 20090526
  12. MAGNESIUM OXIDE [Concomitant]
     Indication: CONSTIPATION
     Dosage: 2.01 GRAM, DAILY
     Route: 048
     Dates: start: 20080727

REACTIONS (1)
  - LIVER DISORDER [None]
